FAERS Safety Report 21218338 (Version 2)
Quarter: 2023Q2

REPORT INFORMATION
  Report Type: Report from Study
  Country: DE (occurrence: DE)
  Receive Date: 20220816
  Receipt Date: 20230630
  Transmission Date: 20230721
  Serious: Yes (Hospitalization, Other)
  Sender: FDA-Public Use
  Company Number: DE-NOVARTISPH-NVSC2022DE183535

PATIENT
  Sex: Female
  Weight: 49 kg

DRUGS (6)
  1. COSENTYX [Suspect]
     Active Substance: SECUKINUMAB
     Indication: Psoriasis
     Dosage: 300 MG
     Route: 065
     Dates: start: 20200207
  2. COSENTYX [Suspect]
     Active Substance: SECUKINUMAB
     Indication: Psoriatic arthropathy
  3. TORSEMIDE [Concomitant]
     Active Substance: TORSEMIDE
     Indication: Product used for unknown indication
     Dosage: 1 DOSAGE FORM, QD
     Route: 065
  4. BISOPROLOL [Concomitant]
     Active Substance: BISOPROLOL
     Indication: Product used for unknown indication
     Dosage: 1 DOSAGE FORM, QD
     Route: 065
  5. AMLODIPINE [Concomitant]
     Active Substance: AMLODIPINE BESYLATE
     Indication: Product used for unknown indication
     Dosage: 1 DOSAGE FORM, QD
     Route: 065
  6. VALSARTAN [Concomitant]
     Active Substance: VALSARTAN
     Indication: Product used for unknown indication
     Dosage: 1 DOSAGE FORM, BID
     Route: 065

REACTIONS (34)
  - Diaphragmatic paralysis [Recovered/Resolved]
  - Hypoxia [Not Recovered/Not Resolved]
  - Cardiac failure [Unknown]
  - Gastritis haemorrhagic [Unknown]
  - Gastric mucosa erythema [Unknown]
  - Oedema mucosal [Unknown]
  - Mucosal atrophy [Unknown]
  - Portal hypertensive gastropathy [Unknown]
  - Acute myocardial infarction [Unknown]
  - Terminal ileitis [Recovered/Resolved]
  - Hepatitis E [Recovered/Resolved]
  - Atrial fibrillation [Recovered/Resolved]
  - Pancreatic atrophy [Unknown]
  - Tricuspid valve incompetence [Unknown]
  - Acquired diaphragmatic eventration [Unknown]
  - Large intestinal obstruction [Unknown]
  - Sleep apnoea syndrome [Unknown]
  - Hypertension [Unknown]
  - Osteoporosis [Not Recovered/Not Resolved]
  - Constipation [Recovered/Resolved]
  - Dysuria [Unknown]
  - Atrial tachycardia [Unknown]
  - Dyspnoea [Recovering/Resolving]
  - Dyspnoea exertional [Unknown]
  - Mean cell haemoglobin concentration decreased [Not Recovered/Not Resolved]
  - Red cell distribution width increased [Recovered/Resolved]
  - Prothrombin time shortened [Unknown]
  - Blood acid phosphatase increased [Recovered/Resolved]
  - Hypercapnia [Unknown]
  - Vascular calcification [Unknown]
  - Spinal osteoarthritis [Unknown]
  - Oedema peripheral [Unknown]
  - Defaecation disorder [Recovered/Resolved]
  - Abdominal pain upper [Unknown]

NARRATIVE: CASE EVENT DATE: 20210301
